FAERS Safety Report 4337579-4 (Version None)
Quarter: 2004Q2

REPORT INFORMATION
  Report Type: 
  Country: None (occurrence: None)
  Receive Date: 20040408
  Receipt Date: 20040330
  Transmission Date: 20050107
  Serious: No
  Sender: FDA-Public Use
  Company Number: 2004204114DE

PATIENT
  Sex: 0

DRUGS (1)
  1. GENOTROPIN [Suspect]

REACTIONS (1)
  - PENIS DISORDER [None]
